FAERS Safety Report 9227429 (Version 1)
Quarter: 2013Q2

REPORT INFORMATION
  Report Type: Spontaneous
  Country: US (occurrence: None)
  Receive Date: 20130411
  Receipt Date: 20130411
  Transmission Date: 20140414
  Serious: Yes (Hospitalization)
  Sender: FDA-Public Use
  Company Number: None

PATIENT
  Age: 63 Year
  Sex: Female
  Weight: 75.5 kg

DRUGS (14)
  1. GLIMEPIRIDE [Suspect]
     Indication: DIABETES MELLITUS
     Dosage: CHRONIC
     Route: 048
  2. METFORMIN [Suspect]
     Indication: DIABETES MELLITUS
     Dosage: CHRONIC
     Route: 048
  3. APAP [Concomitant]
  4. BIOTIN [Concomitant]
  5. NYSTATIN [Concomitant]
  6. CYMBALTA [Concomitant]
  7. VIT D [Concomitant]
  8. MVI [Concomitant]
  9. NEXIUM [Concomitant]
  10. GABAPENTIN [Concomitant]
  11. VIT C [Concomitant]
  12. PRAVASTATIN [Concomitant]
  13. HYDROXYZINE [Concomitant]
  14. TRILEPTAL [Concomitant]

REACTIONS (4)
  - Hypoglycaemia [None]
  - Renal failure acute [None]
  - Urinary tract infection [None]
  - Sepsis [None]
